FAERS Safety Report 7403131-7 (Version None)
Quarter: 2011Q2

REPORT INFORMATION
  Report Type: 
  Country: None (occurrence: None)
  Receive Date: 20110408
  Receipt Date: 20080606
  Transmission Date: 20111010
  Serious: Yes (Death, Hospitalization, Other)
  Sender: FDA-Public Use
  Company Number: US-BAYER-200825070NA

PATIENT
  Age: 78 Year
  Sex: Female
  Weight: 81 kg

DRUGS (17)
  1. PEPCID [Concomitant]
     Dosage: 20 MG, QD
  2. NORVASC [Concomitant]
     Dosage: 5 MG, QD
  3. DIOVAN [Concomitant]
     Dosage: 80 MG, QD
  4. HUMIBID LA [Concomitant]
  5. PRILOSEC [Concomitant]
  6. VANCOMYCIN [Concomitant]
     Dosage: 1 G, UNK
     Route: 042
     Dates: start: 20050516
  7. LASIX [Concomitant]
     Dosage: 20 MG, BID
     Dates: start: 20050415
  8. NEO-SYNEPHRINOL [Concomitant]
     Dosage: UNK
     Dates: start: 20050516
  9. DIABETA [Concomitant]
     Dosage: 5 MG, UNK
  10. ATENOLOL [Concomitant]
  11. ACTOS [Concomitant]
     Dosage: 30 MG, QD
  12. COUMADIN [Concomitant]
  13. HEPARIN [Concomitant]
     Dosage: 30000 U, UNK
     Dates: start: 20050516
  14. TRASYLOL [Suspect]
     Indication: AORTIC VALVE REPLACEMENT
     Dosage: 200 ML, UNK
     Dates: start: 20050516, end: 20050516
  15. ZOCOR [Concomitant]
     Dosage: 20 MG, QD
  16. BIAXIN [Concomitant]
     Dosage: 80/400
  17. FLUCONAZOLE [Concomitant]
     Dosage: 100 MG, UNK

REACTIONS (12)
  - INJURY [None]
  - RENAL IMPAIRMENT [None]
  - RENAL FAILURE [None]
  - FEAR OF DEATH [None]
  - EMOTIONAL DISTRESS [None]
  - ANHEDONIA [None]
  - PAIN [None]
  - UNEVALUABLE EVENT [None]
  - ANXIETY [None]
  - CARDIAC FAILURE [None]
  - ADVERSE EVENT [None]
  - ACTIVITIES OF DAILY LIVING IMPAIRED [None]
